FAERS Safety Report 4466148-0 (Version None)
Quarter: 2004Q4

REPORT INFORMATION
  Report Type: 
  Country: None (occurrence: None)
  Receive Date: 20041004
  Receipt Date: 20040921
  Transmission Date: 20050328
  Serious: Yes (Life-Threatening, Hospitalization)
  Sender: FDA-Public Use
  Company Number: 2004UW13713

PATIENT
  Age: 57 Year
  Sex: Female
  Weight: 92.9874 kg

DRUGS (5)
  1. CRESTOR [Suspect]
     Indication: HYPERLIPIDAEMIA
     Dosage: 10 MG QD PO
     Route: 048
     Dates: start: 20040513
  2. CRESTOR [Suspect]
     Indication: LOW DENSITY LIPOPROTEIN INCREASED
     Dosage: 10 MG QD PO
     Route: 048
     Dates: start: 20040513
  3. AVALIDE [Suspect]
  4. K-DUR 10 [Suspect]
  5. ALEVE [Suspect]

REACTIONS (16)
  - ATRIAL TACHYCARDIA [None]
  - BLOOD CHOLESTEROL INCREASED [None]
  - BLOOD TRIGLYCERIDES INCREASED [None]
  - DRUG INTERACTION [None]
  - FATTY ACID DEFICIENCY [None]
  - FLUID RETENTION [None]
  - HYPERTENSION [None]
  - HYPOVITAMINOSIS [None]
  - IDIOSYNCRATIC DRUG REACTION [None]
  - LOW DENSITY LIPOPROTEIN INCREASED [None]
  - MENTAL STATUS CHANGES [None]
  - MUSCLE DISORDER [None]
  - NECROLYTIC MIGRATORY ERYTHEMA [None]
  - PARAKERATOSIS [None]
  - SHOCK [None]
  - SUPRAVENTRICULAR TACHYCARDIA [None]
